FAERS Safety Report 25361332 (Version 3)
Quarter: 2025Q2

REPORT INFORMATION
  Report Type: Report from Study
  Country: US (occurrence: US)
  Receive Date: 20250527
  Receipt Date: 20250624
  Transmission Date: 20250717
  Serious: No
  Sender: SYNDAX
  Company Number: US-SYNDAX PHARMACEUTICALS, INC.-2025US000448

PATIENT
  Sex: Male
  Weight: 71.202 kg

DRUGS (38)
  1. REVUFORJ [Suspect]
     Active Substance: REVUMENIB CITRATE
     Indication: Acute myeloid leukaemia
     Dosage: 160 MILLIGRAM, BID
     Route: 048
     Dates: start: 20250503
  2. REVUFORJ [Suspect]
     Active Substance: REVUMENIB CITRATE
     Dosage: 110 MILLIGRAM, BID
     Route: 048
     Dates: start: 20250503
  3. ACETAMINOPHEN [Concomitant]
     Active Substance: ACETAMINOPHEN
     Indication: Product used for unknown indication
  4. ACYCLOVIR [Concomitant]
     Active Substance: ACYCLOVIR
     Indication: Product used for unknown indication
     Route: 048
  5. AMLODIPINE [Concomitant]
     Active Substance: AMLODIPINE BESYLATE
     Indication: Product used for unknown indication
  6. AZACITIDINE [Concomitant]
     Active Substance: AZACITIDINE
     Indication: Product used for unknown indication
  7. BUPRENORPHINE HYDROCHLORIDE [Concomitant]
     Active Substance: BUPRENORPHINE HYDROCHLORIDE
     Indication: Product used for unknown indication
  8. CALCIUM CARBONATE [Concomitant]
     Active Substance: CALCIUM CARBONATE
     Indication: Product used for unknown indication
  9. CATHFLO ACTIVASE [Concomitant]
     Active Substance: ALTEPLASE
     Indication: Product used for unknown indication
  10. CEFEPIME HYDROCHLORIDE [Concomitant]
     Active Substance: CEFEPIME HYDROCHLORIDE
     Indication: Product used for unknown indication
  11. CLONAZEPAM [Concomitant]
     Active Substance: CLONAZEPAM
     Indication: Product used for unknown indication
     Route: 048
  12. CRESEMBA [Concomitant]
     Active Substance: ISAVUCONAZONIUM SULFATE
     Indication: Product used for unknown indication
     Dosage: 372 MILLIGRAM, DAILY
     Route: 048
     Dates: start: 20250503
  13. DEXAMETHASONE SODIUM PHOSPHATE [Concomitant]
     Active Substance: DEXAMETHASONE SODIUM PHOSPHATE
     Indication: Product used for unknown indication
  14. DEXTROSE [Concomitant]
     Active Substance: DEXTROSE MONOHYDRATE
     Indication: Product used for unknown indication
     Route: 042
  15. DIPHENHYDRAMINE HYDROCHLORIDE [Concomitant]
     Active Substance: DIPHENHYDRAMINE HYDROCHLORIDE
     Indication: Product used for unknown indication
     Route: 048
  16. DOCUSATE SODIUM [Concomitant]
     Active Substance: DOCUSATE SODIUM
     Indication: Product used for unknown indication
     Route: 048
  17. DRONABINOL [Concomitant]
     Active Substance: DRONABINOL
     Indication: Product used for unknown indication
     Route: 048
  18. ENOXAPARIN SODIUM [Concomitant]
     Active Substance: ENOXAPARIN SODIUM
     Indication: Product used for unknown indication
  19. FOLIC ACID [Concomitant]
     Active Substance: FOLIC ACID
     Indication: Product used for unknown indication
     Route: 048
  20. GLUCAGON [Concomitant]
     Active Substance: GLUCAGON
     Indication: Product used for unknown indication
  21. HUMALOG [Concomitant]
     Active Substance: INSULIN LISPRO
     Indication: Product used for unknown indication
  22. HYDROMORPHONE HCL [Concomitant]
     Active Substance: HYDROMORPHONE HYDROCHLORIDE
     Indication: Product used for unknown indication
  23. LACTATED RINGERS SOLUTION [Concomitant]
     Active Substance: CALCIUM CHLORIDE\POTASSIUM CHLORIDE\SODIUM CHLORIDE\SODIUM LACTATE
     Indication: Product used for unknown indication
  24. LAMOTRIGINE [Concomitant]
     Active Substance: LAMOTRIGINE
     Indication: Product used for unknown indication
     Route: 048
  25. LEVETIRACETAM [Concomitant]
     Active Substance: LEVETIRACETAM
     Indication: Product used for unknown indication
     Route: 048
  26. LOPERAMIDE HYDROCHLORIDE [Concomitant]
     Active Substance: LOPERAMIDE HYDROCHLORIDE
     Indication: Product used for unknown indication
     Route: 048
  27. LORAZEPAM [Concomitant]
     Active Substance: LORAZEPAM
     Indication: Product used for unknown indication
     Route: 048
  28. MIRTAZAPINE [Concomitant]
     Active Substance: MIRTAZAPINE
     Indication: Product used for unknown indication
     Route: 048
  29. MULTIVITAMINS                      /00116001/ [Concomitant]
     Indication: Product used for unknown indication
     Route: 048
  30. ONDANSETRON HYDROCHLORIDE [Concomitant]
     Active Substance: ONDANSETRON HYDROCHLORIDE
     Indication: Product used for unknown indication
  31. OXYCODONE HYDROCHLORIDE [Concomitant]
     Active Substance: OXYCODONE HYDROCHLORIDE
     Indication: Product used for unknown indication
  32. POTASSIUM CHLORIDE [Concomitant]
     Active Substance: POTASSIUM CHLORIDE
     Indication: Product used for unknown indication
     Route: 042
  33. PROCHLORPERAZINE MALEATE [Concomitant]
     Active Substance: PROCHLORPERAZINE MALEATE
     Indication: Product used for unknown indication
     Route: 048
  34. SCOPOLAMINE                        /00008701/ [Concomitant]
     Indication: Product used for unknown indication
     Route: 062
  35. DOCUSATE SODIUM\SENNOSIDES A AND B [Concomitant]
     Active Substance: DOCUSATE SODIUM\SENNOSIDES A AND B
     Indication: Product used for unknown indication
     Route: 048
  36. SODIUM CHLORIDE [Concomitant]
     Active Substance: SODIUM CHLORIDE
     Indication: Product used for unknown indication
     Route: 042
  37. THIAMINE HYDROCHLORIDE [Concomitant]
     Active Substance: THIAMINE HYDROCHLORIDE
     Indication: Product used for unknown indication
     Route: 048
  38. VITAMIN D3 [Concomitant]
     Active Substance: CHOLECALCIFEROL
     Indication: Product used for unknown indication
     Route: 048

REACTIONS (9)
  - Dyspnoea [Not Recovered/Not Resolved]
  - Chest pain [Not Recovered/Not Resolved]
  - Pulmonary pain [Not Recovered/Not Resolved]
  - Joint swelling [Not Recovered/Not Resolved]
  - Joint swelling [Not Recovered/Not Resolved]
  - Fatigue [Not Recovered/Not Resolved]
  - Pain [Not Recovered/Not Resolved]
  - Oedema peripheral [Not Recovered/Not Resolved]
  - White blood cell count decreased [Not Recovered/Not Resolved]
